FAERS Safety Report 9143710 (Version 1)
Quarter: 2013Q1

REPORT INFORMATION
  Report Type: Report from Study
  Country: US (occurrence: US)
  Receive Date: 20130306
  Receipt Date: 20130306
  Transmission Date: 20140127
  Serious: Yes (Death)
  Sender: FDA-Public Use
  Company Number: US-ROCHE-1197996

PATIENT
  Sex: Female

DRUGS (3)
  1. XELODA [Suspect]
     Indication: OESOPHAGEAL CARCINOMA
     Route: 048
     Dates: start: 20120504
  2. OXALIPLATIN [Concomitant]
     Indication: OESOPHAGEAL CARCINOMA
     Route: 042
     Dates: start: 20120504
  3. DOXORUBICIN [Concomitant]
     Indication: OESOPHAGEAL CARCINOMA
     Route: 042
     Dates: start: 20120504

REACTIONS (1)
  - Death [Fatal]
